FAERS Safety Report 13680156 (Version 1)
Quarter: 2017Q2

REPORT INFORMATION
  Report Type: Report from Study
  Country: US (occurrence: US)
  Receive Date: 20170622
  Receipt Date: 20170622
  Transmission Date: 20170830
  Serious: Yes (Hospitalization)
  Sender: FDA-Public Use
  Company Number: US-ACTELION-A-NJ2017-153330

PATIENT
  Age: 15 Year
  Sex: Female
  Weight: 26.76 kg

DRUGS (3)
  1. OPSUMIT [Suspect]
     Active Substance: MACITENTAN
     Indication: PULMONARY ARTERIAL HYPERTENSION
     Dosage: 10 MG, QD
     Route: 048
     Dates: start: 20170408
  2. TRACLEER [Suspect]
     Active Substance: BOSENTAN
     Indication: PULMONARY ARTERIAL HYPERTENSION
     Dosage: 125 MG, BID
     Route: 048
  3. ADCIRCA [Concomitant]
     Active Substance: TADALAFIL

REACTIONS (8)
  - Dyspnoea [Unknown]
  - Pulmonary arterial hypertension [Unknown]
  - Chest pain [Unknown]
  - Oedema peripheral [Unknown]
  - Catheter site pain [Unknown]
  - Swelling face [Unknown]
  - Condition aggravated [Unknown]
  - Chest injury [Not Recovered/Not Resolved]

NARRATIVE: CASE EVENT DATE: 201704
